FAERS Safety Report 24760089 (Version 1)
Quarter: 2024Q4

REPORT INFORMATION
  Report Type: Spontaneous
  Country: US (occurrence: US)
  Receive Date: 20241220
  Receipt Date: 20241220
  Transmission Date: 20250115
  Serious: Yes (Life-Threatening, Hospitalization)
  Sender: DR REDDYS
  Company Number: None

PATIENT
  Age: 48 Year
  Sex: Male

DRUGS (1)
  1. HEPARIN [Suspect]
     Active Substance: HEPARIN SODIUM
     Indication: Pulmonary embolism
     Dosage: DRIP

REACTIONS (3)
  - Heparin-induced thrombocytopenia [Recovering/Resolving]
  - Adrenal haemorrhage [Recovering/Resolving]
  - Adrenal insufficiency [Recovering/Resolving]
